FAERS Safety Report 9696712 (Version 1)
Quarter: 2013Q4

REPORT INFORMATION
  Report Type: Spontaneous
  Country: US (occurrence: US)
  Receive Date: 20131119
  Receipt Date: 20131119
  Transmission Date: 20140711
  Serious: No
  Sender: FDA-Public Use
  Company Number: US-GILEAD-2007-0014310

PATIENT
  Sex: Female

DRUGS (1)
  1. LETAIRIS [Suspect]
     Dates: end: 20071105

REACTIONS (3)
  - Constipation [None]
  - Local swelling [None]
  - Headache [None]
